FAERS Safety Report 7982562-0 (Version None)
Quarter: 2011Q4

REPORT INFORMATION
  Report Type: 
  Country: None (occurrence: None)
  Receive Date: 20111215
  Receipt Date: 20111208
  Transmission Date: 20120403
  Serious: Yes (Hospitalization)
  Sender: FDA-Public Use
  Company Number: US-GLAXOSMITHKLINE-A0882322A

PATIENT
  Sex: Male
  Weight: 122.7 kg

DRUGS (1)
  1. ROSIGLITAZONE [Suspect]
     Indication: DIABETES MELLITUS
     Route: 048

REACTIONS (5)
  - CARDIOVASCULAR DISORDER [None]
  - HYPERTENSION [None]
  - THROMBOSIS [None]
  - CARDIAC DISORDER [None]
  - OEDEMA PERIPHERAL [None]
